FAERS Safety Report 5160140-9 (Version None)
Quarter: 2006Q4

REPORT INFORMATION
  Report Type: 
  Country: None (occurrence: None)
  Receive Date: 20061129
  Receipt Date: 20060127
  Transmission Date: 20070319
  Serious: Yes (Other)
  Sender: FDA-Public Use
  Company Number: FR-BRISTOL-MYERS SQUIBB COMPANY-13262365

PATIENT
  Age: 39 Year
  Sex: Male
  Weight: 72 kg

DRUGS (9)
  1. REYATAZ [Suspect]
     Indication: HIV INFECTION
     Route: 048
     Dates: start: 20040511
  2. NORVIR [Suspect]
     Indication: HIV TEST POSITIVE
     Dates: start: 20040511
  3. ZIAGEN [Concomitant]
     Indication: HIV INFECTION
     Route: 048
     Dates: start: 20001123
  4. VIRAMUNE [Concomitant]
     Indication: HIV INFECTION
     Route: 048
     Dates: start: 20001123
  5. ZOLPIDEM TARTRATE [Concomitant]
  6. ACETAMINOPHEN W/ PROPOXYPHENE HCL [Concomitant]
  7. CRESTOR [Concomitant]
     Indication: HYPERCHOLESTEROLAEMIA
     Dates: start: 20051219
  8. CRESTOR [Concomitant]
     Indication: HYPERTRIGLYCERIDAEMIA
     Dates: start: 20051219
  9. LORAZEPAM [Concomitant]

REACTIONS (1)
  - OSTEONECROSIS [None]
